FAERS Safety Report 17822744 (Version 7)
Quarter: 2020Q4

REPORT INFORMATION
  Report Type: Spontaneous
  Country: US (occurrence: US)
  Receive Date: 20200526
  Receipt Date: 20201204
  Transmission Date: 20210113
  Serious: Yes (Death, Hospitalization, Other)
  Sender: FDA-Public Use
  Company Number: US-SA-2020SA134243

PATIENT

DRUGS (4)
  1. DUPIXENT [Suspect]
     Active Substance: DUPILUMAB
     Dosage: 300 MG, QOW
     Route: 058
     Dates: start: 2020, end: 2020
  2. DUPIXENT [Suspect]
     Active Substance: DUPILUMAB
     Indication: PRODUCT USED FOR UNKNOWN INDICATION
     Dosage: 600 MG, 1X
     Route: 058
     Dates: start: 202003, end: 202003
  3. DUPIXENT [Suspect]
     Active Substance: DUPILUMAB
     Dosage: 300 MG, QOW
     Route: 058
     Dates: start: 2020, end: 2020
  4. FELDENE [Concomitant]
     Active Substance: PIROXICAM
     Dosage: UNK
     Route: 065

REACTIONS (8)
  - Injection site erythema [Unknown]
  - Gastrointestinal disorder [Unknown]
  - Skin ulcer [Unknown]
  - SARS-CoV-2 test positive [Unknown]
  - Death [Fatal]
  - COVID-19 [Unknown]
  - Fungal infection [Unknown]
  - Influenza [Unknown]

NARRATIVE: CASE EVENT DATE: 2020
